FAERS Safety Report 25531801 (Version 1)
Quarter: 2025Q3

REPORT INFORMATION
  Report Type: Spontaneous
  Country: CN (occurrence: CN)
  Receive Date: 20250709
  Receipt Date: 20250709
  Transmission Date: 20251021
  Serious: Yes (Other)
  Sender: BEIGENE
  Company Number: CN-BEIGENE-BGN-2025-010778

PATIENT
  Age: 62 Year

DRUGS (10)
  1. TISLELIZUMAB [Suspect]
     Active Substance: TISLELIZUMAB
     Indication: Bile duct cancer
     Route: 065
  2. TISLELIZUMAB [Suspect]
     Active Substance: TISLELIZUMAB
     Route: 065
  3. TISLELIZUMAB [Suspect]
     Active Substance: TISLELIZUMAB
     Route: 065
  4. TISLELIZUMAB [Suspect]
     Active Substance: TISLELIZUMAB
     Route: 065
  5. ZANIDATAMAB [Suspect]
     Active Substance: ZANIDATAMAB
     Indication: Bile duct cancer
     Route: 065
  6. ZANIDATAMAB [Suspect]
     Active Substance: ZANIDATAMAB
     Route: 065
  7. ZANIDATAMAB [Suspect]
     Active Substance: ZANIDATAMAB
     Route: 065
  8. ZANIDATAMAB [Suspect]
     Active Substance: ZANIDATAMAB
     Route: 065
  9. LENVATINIB [Concomitant]
     Active Substance: LENVATINIB
     Indication: Bile duct cancer
     Route: 065
  10. LENVATINIB [Concomitant]
     Active Substance: LENVATINIB
     Route: 065

REACTIONS (5)
  - Gastrointestinal haemorrhage [Unknown]
  - Cardiac failure [Unknown]
  - Acute kidney injury [Unknown]
  - Coma [Unknown]
  - Drug effect less than expected [Unknown]
